FAERS Safety Report 11318123 (Version 3)
Quarter: 2015Q4

REPORT INFORMATION
  Report Type: Spontaneous
  Country: FR (occurrence: FR)
  Receive Date: 20150728
  Receipt Date: 20151123
  Transmission Date: 20160304
  Serious: Yes (Hospitalization, Other)
  Sender: FDA-Public Use
  Company Number: FR-BAXTER-2015BAX039738

PATIENT
  Age: 59 Year
  Sex: Female

DRUGS (26)
  1. ENDOXAN 1000 MG, POUDRE POUR SOLUTION INJECTABLE [Suspect]
     Active Substance: CYCLOPHOSPHAMIDE
     Dosage: 2ND COURSE IN 15 DAYS
     Route: 042
     Dates: start: 20150609
  2. HYDROCORTISONE. [Suspect]
     Active Substance: HYDROCORTISONE
     Indication: POLYCHONDRITIS
     Route: 048
     Dates: start: 2008
  3. LEVOTHYROX [Concomitant]
     Active Substance: LEVOTHYROXINE
     Indication: PRODUCT USED FOR UNKNOWN INDICATION
     Route: 048
     Dates: start: 2006
  4. UROMITEXAN 5 G/50 ML, SOLUTION INJECTABLE POUR PERFUSION EN FLACON [Suspect]
     Active Substance: MESNA
     Indication: PROPHYLAXIS
     Dosage: 1 DOSAGE FORM (0.0667, UNITS NOT REPORTED), 3RD COURSE IN 15 DAYS, DAY 1
     Route: 042
     Dates: start: 20150526
  5. UROMITEXAN 5 G/50 ML, SOLUTION INJECTABLE POUR PERFUSION EN FLACON [Suspect]
     Active Substance: MESNA
     Dosage: 2ND COURSE IN 15 DAYS, DAY 15
     Route: 042
     Dates: start: 20150609
  6. UROMITEXAN 5 G/50 ML, SOLUTION INJECTABLE POUR PERFUSION EN FLACON [Suspect]
     Active Substance: MESNA
     Dosage: 1 DOSAGE FORM (0.0667, UNITS NOT REPORTED), 3RD COURSE IN 15 DAYS, DAY 3
     Route: 042
     Dates: start: 20150625, end: 20150625
  7. ENDOXAN 1000 MG, POUDRE POUR SOLUTION INJECTABLE [Suspect]
     Active Substance: CYCLOPHOSPHAMIDE
     Indication: POLYCHONDRITIS
     Dosage: 1ST COURSE IN 15 DAYS
     Route: 042
     Dates: start: 20150526
  8. ENDOXAN 1000 MG, POUDRE POUR SOLUTION INJECTABLE [Suspect]
     Active Substance: CYCLOPHOSPHAMIDE
     Dosage: 3RD COURSE IN 15 DAYS
     Route: 042
     Dates: start: 20150625, end: 20150625
  9. CEBUTID [Concomitant]
     Active Substance: FLURBIPROFEN
     Indication: POLYCHONDRITIS
     Dosage: DAILY IF CRISIS
     Route: 048
     Dates: start: 2011
  10. PRIMPERAN [Concomitant]
     Active Substance: METOCLOPRAMIDE HYDROCHLORIDE
     Indication: PRODUCT USED FOR UNKNOWN INDICATION
     Dosage: 3 TIMES DAILY, 3 DOSAGE FORM IN CASE OF REQUEST
     Route: 048
  11. PARACETAMOL [Concomitant]
     Active Substance: ACETAMINOPHEN
     Indication: PRODUCT USED FOR UNKNOWN INDICATION
     Dosage: 4 TABLETS/ DAY IN CAE OF REQUEST
     Route: 048
  12. CORTANCYL [Suspect]
     Active Substance: PREDNISONE
     Route: 065
     Dates: start: 20150628
  13. ZELITREX [Concomitant]
     Active Substance: VALACYCLOVIR HYDROCHLORIDE
     Indication: PRODUCT USED FOR UNKNOWN INDICATION
     Route: 048
  14. CALCIDOSE D3 [Concomitant]
     Active Substance: CALCIUM CARBONATE\CHOLECALCIFEROL
     Indication: PRODUCT USED FOR UNKNOWN INDICATION
     Dosage: FORM STRENGTH: 500 MG/ 400 UI, SACHET
     Route: 048
  15. STILNOX [Concomitant]
     Active Substance: ZOLPIDEM TARTRATE
     Indication: PRODUCT USED FOR UNKNOWN INDICATION
     Route: 048
  16. CORTANCYL [Suspect]
     Active Substance: PREDNISONE
     Route: 065
  17. UROMITEXAN 400 MG, COMPRIM? PELLICUL? S?CABLE [Suspect]
     Active Substance: MESNA
     Indication: PROPHYLAXIS
     Route: 048
     Dates: start: 20150625, end: 20150625
  18. CORTANCYL [Suspect]
     Active Substance: PREDNISONE
     Route: 042
     Dates: start: 20150627
  19. DAFALGAN CODEINE [Concomitant]
     Active Substance: ACETAMINOPHEN\CODEINE PHOSPHATE
     Indication: POLYCHONDRITIS
     Dosage: 500MG/30MG
     Route: 048
     Dates: start: 2008
  20. ESOMEPRAZOLE ACTAVIS [Concomitant]
     Active Substance: ESOMEPRAZOLE
     Indication: PRODUCT USED FOR UNKNOWN INDICATION
     Route: 048
     Dates: start: 2011
  21. ROACTEMRA [Suspect]
     Active Substance: TOCILIZUMAB
     Indication: POLYCHONDRITIS
     Route: 042
     Dates: start: 201404, end: 201505
  22. CETIRIZINE [Concomitant]
     Active Substance: CETIRIZINE HYDROCHLORIDE
     Indication: PRODUCT USED FOR UNKNOWN INDICATION
     Route: 065
  23. BACTRIM [Concomitant]
     Active Substance: SULFAMETHOXAZOLE\TRIMETHOPRIM
     Indication: PRODUCT USED FOR UNKNOWN INDICATION
     Dosage: 0.4286 (UNITS NOT REPORTED), ON MONDAY, WEDNESDAY AND FRIDAY
     Route: 048
     Dates: start: 20150526
  24. TANGANIL [Concomitant]
     Active Substance: ACETYLLEUCINE
     Indication: PRODUCT USED FOR UNKNOWN INDICATION
     Dosage: 1 OR 2 TABLETS IN THE MORNING AND IN THE EVENING
     Route: 048
  25. CORTANCYL [Suspect]
     Active Substance: PREDNISONE
     Indication: ADVERSE EVENT
     Route: 065
     Dates: start: 20150627
  26. CORTANCYL [Suspect]
     Active Substance: PREDNISONE
     Route: 065
     Dates: start: 20150629

REACTIONS (8)
  - Allergic oedema [Recovering/Resolving]
  - Vitreous floaters [Recovering/Resolving]
  - Dyspnoea [Recovered/Resolved]
  - Aphonia [Recovered/Resolved]
  - Urinary retention [Recovering/Resolving]
  - Drug effect decreased [Unknown]
  - Arthralgia [Unknown]
  - Photopsia [Recovering/Resolving]

NARRATIVE: CASE EVENT DATE: 20150625
